FAERS Safety Report 19690471 (Version 2)
Quarter: 2021Q3

REPORT INFORMATION
  Report Type: Spontaneous
  Country: IN (occurrence: IN)
  Receive Date: 20210812
  Receipt Date: 20210914
  Transmission Date: 20211014
  Serious: Yes (Other)
  Sender: FDA-Public Use
  Company Number: IN-PFIZER INC-2020277576

PATIENT
  Age: 48 Year
  Sex: Female
  Weight: 48 kg

DRUGS (3)
  1. CRIZALK [Suspect]
     Active Substance: CRIZOTINIB
     Dosage: 200 MG, 2X/DAY (BD)
  2. CRIZALK [Suspect]
     Active Substance: CRIZOTINIB
     Dosage: 200 MG
  3. CRIZALK [Suspect]
     Active Substance: CRIZOTINIB
     Indication: NON-SMALL CELL LUNG CANCER
     Dosage: 250 MG, 2X/DAY
     Route: 048
     Dates: start: 20191120

REACTIONS (5)
  - Constipation [Unknown]
  - Abdominal discomfort [Unknown]
  - Electrocardiogram ST-T change [Unknown]
  - Obesity [Unknown]
  - Blood pressure increased [Unknown]
